FAERS Safety Report 7420763-0 (Version None)
Quarter: 2011Q2

REPORT INFORMATION
  Report Type: 
  Country: None (occurrence: None)
  Receive Date: 20110418
  Receipt Date: 20110406
  Transmission Date: 20111010
  Serious: Yes (Other)
  Sender: FDA-Public Use
  Company Number: BR-ROCHE-762558

PATIENT
  Sex: Female
  Weight: 75 kg

DRUGS (14)
  1. CRESTOR [Concomitant]
  2. AMLODIPINE BESYLATE [Concomitant]
  3. LEXOTAN [Concomitant]
  4. METHOTREXATE [Concomitant]
  5. LOSARTAN POTASSIUM [Concomitant]
  6. FELDENE [Concomitant]
  7. OMEPRAZOLE [Concomitant]
  8. OSCAL D [Concomitant]
  9. DEFLAZACORT [Concomitant]
  10. DIPROSPAN [Concomitant]
  11. FOLIC ACID [Concomitant]
  12. TOCILIZUMAB [Suspect]
     Indication: RHEUMATOID ARTHRITIS
     Dosage: INFUSION,UNSPECIFIED DOSE
     Route: 042
     Dates: start: 20110111, end: 20110211
  13. TOCILIZUMAB [Suspect]
     Route: 042
  14. METFORMIN [Concomitant]

REACTIONS (6)
  - URINARY TRACT INFECTION [None]
  - ABASIA [None]
  - PAIN [None]
  - ARTHRITIS [None]
  - DRUG INEFFECTIVE [None]
  - OEDEMA PERIPHERAL [None]
